FAERS Safety Report 6728035-4 (Version None)
Quarter: 2010Q2

REPORT INFORMATION
  Report Type: 
  Country: None (occurrence: None)
  Receive Date: 20100517
  Receipt Date: 20100512
  Transmission Date: 20101027
  Serious: Yes (Other)
  Sender: FDA-Public Use
  Company Number: US-B.I. PHARMACEUTICALS,INC./RIDGEFIELD-2010-BP-05359BP

PATIENT
  Age: 82 Year
  Sex: Female

DRUGS (9)
  1. CATAPRES-TTS-1 [Suspect]
     Indication: HYPERTENSION
     Dosage: 0.3 MG
     Route: 061
     Dates: start: 20091101
  2. GENERIC CLONODINE (MYLAN) [Concomitant]
     Indication: HYPERTENSION
  3. LISINOPRIL [Concomitant]
     Indication: HYPERTENSION
  4. BENICAR [Concomitant]
     Indication: HYPERTENSION
  5. TOPROL-XL [Concomitant]
     Indication: HYPERTENSION
  6. INDAPIMIDE [Concomitant]
     Indication: HYPERTENSION
  7. ACIPHEX [Concomitant]
     Indication: GASTROOESOPHAGEAL REFLUX DISEASE
  8. ASPIRIN [Concomitant]
  9. LIPITOR [Concomitant]
     Indication: BLOOD CHOLESTEROL INCREASED

REACTIONS (5)
  - APPLICATION SITE PRURITUS [None]
  - APPLICATION SITE RASH [None]
  - DIZZINESS [None]
  - HYPERTENSION [None]
  - HYPOTENSION [None]
